FAERS Safety Report 6222522-3 (Version None)
Quarter: 2009Q2

REPORT INFORMATION
  Report Type: 
  Country: None (occurrence: None)
  Receive Date: 20090609
  Receipt Date: 20090609
  Transmission Date: 20091009
  Serious: Yes (Other)
  Sender: FDA-Public Use
  Company Number: None

PATIENT
  Sex: Female
  Weight: 68.0396 kg

DRUGS (5)
  1. LEVAQUIN [Suspect]
     Indication: POSTOPERATIVE CARE
     Dosage: 1 TABLET QD PO
     Route: 048
     Dates: start: 20090526, end: 20090601
  2. LEVAQUIN [Suspect]
     Indication: PROPHYLAXIS
     Dosage: 1 TABLET QD PO
     Route: 048
     Dates: start: 20090526, end: 20090601
  3. TRAZODONE HCL [Concomitant]
  4. COMBIGAN [Concomitant]
  5. ERYTHROMYCIN [Concomitant]

REACTIONS (7)
  - BRADYPHRENIA [None]
  - DISEASE RECURRENCE [None]
  - DIZZINESS [None]
  - GAIT DISTURBANCE [None]
  - JOINT STIFFNESS [None]
  - PLANTAR FASCIITIS [None]
  - TENDON PAIN [None]
